FAERS Safety Report 7551409-9 (Version None)
Quarter: 2011Q2

REPORT INFORMATION
  Report Type: 
  Country: None (occurrence: None)
  Receive Date: 20110616
  Receipt Date: 20110601
  Transmission Date: 20111010
  Serious: Yes (Other)
  Sender: FDA-Public Use
  Company Number: CH-JNJFOC-20110510452

PATIENT
  Age: 26 Year
  Sex: Female

DRUGS (4)
  1. GLUTAMINE [Concomitant]
     Indication: NUTRITIONAL SUPPORT
     Route: 065
  2. REMICADE [Suspect]
     Indication: CROHN'S DISEASE
     Route: 042
     Dates: start: 20110107
  3. ZINC [Concomitant]
     Indication: NUTRITIONAL SUPPORT
     Route: 065
  4. MARCOUMAR [Concomitant]
     Indication: PRODUCT USED FOR UNKNOWN INDICATION

REACTIONS (2)
  - WEIGHT INCREASED [None]
  - DECREASED APPETITE [None]
